FAERS Safety Report 24659637 (Version 1)
Quarter: 2024Q4

REPORT INFORMATION
  Report Type: Spontaneous
  Country: US (occurrence: US)
  Receive Date: 20241125
  Receipt Date: 20241125
  Transmission Date: 20250115
  Serious: Yes (Life-Threatening, Hospitalization, Other)
  Sender: PFIZER
  Company Number: US-PFIZER INC-202400306791

PATIENT
  Age: 23 Year
  Sex: Male

DRUGS (6)
  1. TOBRAMYCIN [Suspect]
     Active Substance: TOBRAMYCIN\TOBRAMYCIN SULFATE
     Indication: Enterobacter infection
     Dosage: 80 MG, EVERY 8 H
  2. TOBRAMYCIN [Suspect]
     Active Substance: TOBRAMYCIN\TOBRAMYCIN SULFATE
     Indication: Hepatic infection
  3. CEPHALOTHIN [Concomitant]
     Active Substance: CEPHALOTHIN
     Dosage: 1.0G EVERY 6 H. PRE- INTRA-OPERATIVELY
  4. CEPHALOTHIN [Concomitant]
     Active Substance: CEPHALOTHIN
     Dosage: 1.0G EVERY 6 H. POST INTRA-OPERATIVELY
  5. CLINDAMYCIN [Concomitant]
     Active Substance: CLINDAMYCIN
     Indication: Enterobacter infection
     Dosage: 600 MG,EVERY 6 H
  6. CLINDAMYCIN [Concomitant]
     Active Substance: CLINDAMYCIN
     Indication: Hepatic infection

REACTIONS (1)
  - Renal failure [Recovered/Resolved]
